FAERS Safety Report 16070836 (Version 1)
Quarter: 2019Q1

REPORT INFORMATION
  Report Type: Spontaneous
  Country: US (occurrence: US)
  Receive Date: 20190212
  Receipt Date: 20190212
  Transmission Date: 20190418
  Serious: Yes (Hospitalization)
  Sender: FDA-Public Use
  Company Number: None

PATIENT
  Age: 71 Year
  Sex: Male
  Weight: 73.4 kg

DRUGS (2)
  1. CASODEX [Suspect]
     Active Substance: BICALUTAMIDE
     Dates: end: 20190130
  2. LEUPROLIDE ACETATE. [Suspect]
     Active Substance: LEUPROLIDE ACETATE
     Dates: end: 20190128

REACTIONS (5)
  - Blood chloride decreased [None]
  - Pyrexia [None]
  - Pituitary tumour benign [None]
  - Blood sodium decreased [None]
  - Blood calcium decreased [None]

NARRATIVE: CASE EVENT DATE: 20190128
